FAERS Safety Report 10216399 (Version 2)
Quarter: 2014Q2

REPORT INFORMATION
  Report Type: Report from Study
  Country: KH (occurrence: KH)
  Receive Date: 20140604
  Receipt Date: 20140609
  Transmission Date: 20141212
  Serious: Yes (Death, Other)
  Sender: FDA-Public Use
  Company Number: PHHY2014KH067820

PATIENT
  Age: 43 Year
  Sex: Female
  Weight: 56 kg

DRUGS (9)
  1. GLIVEC [Suspect]
     Indication: CHRONIC MYELOID LEUKAEMIA
     Dosage: 400 MG, UNK
     Route: 048
     Dates: start: 20130702
  2. GLIVEC [Suspect]
     Dosage: 400 MG, UNK
     Route: 048
  3. GLIVEC [Suspect]
     Dosage: 300 MG, UNK
     Route: 048
  4. GLIVEC [Suspect]
     Dosage: 400 MG, UNK
     Route: 048
  5. GLIVEC [Suspect]
     Dosage: 600 MG, UNK
     Route: 048
     Dates: end: 20140408
  6. GLIVEC [Suspect]
     Dosage: 600 MG, UKN
     Route: 048
     Dates: start: 20140417
  7. METOCLOPRAMIDE [Concomitant]
     Indication: NAUSEA
     Dosage: 10 MG, TID PRN
     Route: 048
     Dates: start: 20140411
  8. CHLORPHENIRAMINE [Concomitant]
     Indication: SEDATION
     Dosage: 4 MG, NOCTE
     Route: 048
     Dates: start: 20140417
  9. OMEPRAZOLE [Concomitant]
     Indication: EPIGASTRIC DISCOMFORT
     Dosage: 20 MG, BID
     Route: 048
     Dates: start: 20140417

REACTIONS (11)
  - Cerebral haemorrhage [Fatal]
  - Chronic myeloid leukaemia transformation [Unknown]
  - Abdominal mass [Unknown]
  - White blood cell count increased [Unknown]
  - Platelet count decreased [Unknown]
  - Pyrexia [Unknown]
  - White blood cell count decreased [Recovered/Resolved]
  - Loss of consciousness [Unknown]
  - Nausea [Recovering/Resolving]
  - Asthenia [Recovering/Resolving]
  - Haemoglobin decreased [Unknown]
